FAERS Safety Report 23979917 (Version 1)
Quarter: 2024Q2

REPORT INFORMATION
  Report Type: Report from Study
  Country: US (occurrence: US)
  Receive Date: 20240617
  Receipt Date: 20240617
  Transmission Date: 20240716
  Serious: Yes (Other)
  Sender: FDA-Public Use
  Company Number: US-ABBVIE-5802286

PATIENT
  Age: 57 Year
  Sex: Female

DRUGS (1)
  1. HUMIRA [Suspect]
     Active Substance: ADALIMUMAB
     Indication: Product used for unknown indication
     Dosage: LAST ADMIN DATE - 2024
     Route: 058
     Dates: start: 20090317

REACTIONS (3)
  - Vision blurred [Not Recovered/Not Resolved]
  - Spinal implantation [Unknown]
  - Autoimmune disorder [Unknown]

NARRATIVE: CASE EVENT DATE: 20240516
